FAERS Safety Report 23136667 (Version 1)
Quarter: 2023Q4

REPORT INFORMATION
  Report Type: Spontaneous
  Country: US (occurrence: US)
  Receive Date: 20231102
  Receipt Date: 20231102
  Transmission Date: 20240110
  Serious: No
  Sender: FDA-Public Use
  Company Number: US-OYSTER POINT PHARMA, INC-US-OYS-23-000947

PATIENT

DRUGS (2)
  1. TYRVAYA [Suspect]
     Active Substance: VARENICLINE TARTRATE
     Indication: Dry eye
     Dosage: UNK, UNK
     Route: 045
     Dates: start: 202308
  2. REFRESH CLASSIC LUBRICANT EYE DROPS [Concomitant]
     Indication: Product used for unknown indication
     Dosage: UNKNOWN
     Route: 065

REACTIONS (2)
  - Product dose omission issue [Unknown]
  - Product delivery mechanism issue [Unknown]

NARRATIVE: CASE EVENT DATE: 20230813
